FAERS Safety Report 16072358 (Version 1)
Quarter: 2019Q1

REPORT INFORMATION
  Report Type: Spontaneous
  Country: US (occurrence: US)
  Receive Date: 20190314
  Receipt Date: 20190314
  Transmission Date: 20190418
  Serious: No
  Sender: FDA-Public Use
  Company Number: US-ALLERGAN-1906155US

PATIENT
  Sex: Female

DRUGS (2)
  1. MESALAZINE UNK [Suspect]
     Active Substance: MESALAMINE
     Indication: APHTHOUS ULCER
     Dosage: 800 MG, TID
     Route: 065
  2. MESALAZINE UNK [Suspect]
     Active Substance: MESALAMINE
     Indication: ENTERITIS

REACTIONS (3)
  - Product use issue [Unknown]
  - Dizziness [Unknown]
  - Off label use [Unknown]
